FAERS Safety Report 4921448-2 (Version None)
Quarter: 2006Q1

REPORT INFORMATION
  Report Type: 
  Country: None (occurrence: None)
  Receive Date: 20060224
  Receipt Date: 20060125
  Transmission Date: 20060701
  Serious: Yes (Hospitalization, Other)
  Sender: FDA-Public Use
  Company Number: FR-BRISTOL-MYERS SQUIBB COMPANY-13260690

PATIENT
  Age: 43 Year
  Sex: Male
  Weight: 61 kg

DRUGS (6)
  1. ABILIFY [Suspect]
     Indication: PSYCHOTIC DISORDER
     Route: 048
     Dates: start: 20050513
  2. DEPAKENE [Concomitant]
     Indication: EPILEPSY
  3. TERCIAN [Concomitant]
     Indication: PSYCHOTIC DISORDER
  4. LOXAPINE [Concomitant]
     Indication: PSYCHOTIC DISORDER
  5. ATARAX [Concomitant]
     Indication: ANXIETY
  6. URBANYL [Concomitant]
     Indication: ANXIETY

REACTIONS (4)
  - FALL [None]
  - GRAND MAL CONVULSION [None]
  - HYPONATRAEMIA [None]
  - SKULL FRACTURED BASE [None]
